FAERS Safety Report 6393417-X (Version None)
Quarter: 2009Q4

REPORT INFORMATION
  Report Type: 
  Country: None (occurrence: None)
  Receive Date: 20091008
  Receipt Date: 20090929
  Transmission Date: 20100525
  Serious: Yes (Hospitalization)
  Sender: FDA-Public Use
  Company Number: BR-ASTRAZENECA-2009SE09651

PATIENT
  Age: 52 Year
  Sex: Male
  Weight: 80 kg

DRUGS (5)
  1. ROSUVASTATIN CALCIUM [Suspect]
     Indication: HYPERCHOLESTEROLAEMIA
     Route: 048
     Dates: start: 20090507, end: 20090807
  2. ROSUVASTATIN CALCIUM [Suspect]
     Route: 048
     Dates: start: 20090818, end: 20090821
  3. ROSUVASTATIN CALCIUM [Suspect]
     Route: 048
     Dates: end: 20090928
  4. DILTIAZEM HYDROCHLORIDE [Concomitant]
     Indication: ANGINA PECTORIS
     Route: 048
     Dates: start: 19920801
  5. ASPIRIN [Concomitant]
     Indication: ANGINA PECTORIS
     Dosage: DAILY
     Route: 048
     Dates: start: 19920101

REACTIONS (4)
  - CHEST PAIN [None]
  - FIBROMYALGIA [None]
  - MUSCULOSKELETAL PAIN [None]
  - WEIGHT DECREASED [None]
